FAERS Safety Report 6606445-3 (Version None)
Quarter: 2010Q1

REPORT INFORMATION
  Report Type: 
  Country: None (occurrence: None)
  Receive Date: 20100226
  Receipt Date: 20100215
  Transmission Date: 20100710
  Serious: Yes (Other)
  Sender: FDA-Public Use
  Company Number: PHEH2007US09930

PATIENT
  Sex: Male

DRUGS (25)
  1. AREDIA [Suspect]
     Indication: MULTIPLE MYELOMA
     Dosage: 90MG
     Dates: start: 20020902
  2. ZOMETA [Suspect]
     Indication: MULTIPLE MYELOMA
     Dosage: 4MG
     Dates: end: 20070101
  3. DECADRON [Concomitant]
  4. MELPHALAN [Concomitant]
     Dosage: 10 MG / DAILY
  5. DOXIL [Concomitant]
     Dosage: UNK
     Dates: end: 20081001
  6. CYTOXAN [Concomitant]
     Dosage: UNK
     Dates: end: 20081201
  7. PREDNISONE [Concomitant]
     Dosage: 60 MG FOR 7 DAYS, FOLLOWED BY 20 MG EVERY OTHER DAY
     Dates: end: 20081201
  8. BACTRIM [Concomitant]
     Indication: PROPHYLAXIS
     Dosage: UNK
  9. LEVAQUIN [Concomitant]
     Dosage: UNK
     Dates: end: 20090115
  10. OXYCODONE HCL [Concomitant]
     Dosage: UNK
  11. PERCOCET [Concomitant]
     Dosage: 5 / 325, AS NEEDED
  12. ONDANSETRON [Concomitant]
     Dosage: UNK
  13. OMEPRAZOLE [Concomitant]
     Dosage: UNK
  14. SINGULAIR [Concomitant]
     Dosage: UNK
  15. FORADIL                                 /USA/ [Concomitant]
     Dosage: UNK
  16. ASMANEX TWISTHALER [Concomitant]
     Dosage: 220 MCG
  17. SUDAFED 12 HOUR [Concomitant]
     Indication: SINUS CONGESTION
     Dosage: UNK
  18. BENADRYL ^ACHE^ [Concomitant]
     Indication: SINUS CONGESTION
     Dosage: UNK
  19. METHADONE [Concomitant]
     Dosage: 50 MG / EVERY 8 HRS
     Route: 048
  20. FLUNISOLIDE [Concomitant]
     Dosage: UNK
     Route: 045
  21. ALBUTEROL [Concomitant]
     Dosage: UNK
  22. DEXAMETHASONE [Concomitant]
     Dosage: 40 MG / DAY 1-4 OF EVERY 28 DAY CYCLE
     Dates: start: 20070202
  23. THALIDOMIDE [Concomitant]
     Dosage: UNK
  24. ARANESP [Concomitant]
     Dosage: UNK
  25. PROCRIT                            /00909301/ [Concomitant]
     Dosage: UNK

REACTIONS (40)
  - ANAEMIA [None]
  - ANXIETY [None]
  - ARTHRITIS [None]
  - BACK PAIN [None]
  - BLOOD IMMUNOGLOBULIN G INCREASED [None]
  - BONE DISORDER [None]
  - BONE LESION [None]
  - CALCULUS URETERIC [None]
  - COMPRESSION FRACTURE [None]
  - COUGH [None]
  - DEFORMITY [None]
  - DYSPNOEA [None]
  - EMOTIONAL DISTRESS [None]
  - EMPHYSEMA [None]
  - ENDODONTIC PROCEDURE [None]
  - FACIAL PAIN [None]
  - HYDRONEPHROSIS [None]
  - HYPERSENSITIVITY [None]
  - HYPOPHAGIA [None]
  - INFECTION [None]
  - INTERSTITIAL LUNG DISEASE [None]
  - KYPHOSIS [None]
  - MONOCLONAL IMMUNOGLOBULIN PRESENT [None]
  - MUSCULOSKELETAL CHEST PAIN [None]
  - NEPHROLITHIASIS [None]
  - OSTEONECROSIS [None]
  - OSTEOPENIA [None]
  - OSTEOPOROSIS [None]
  - PAIN [None]
  - PAIN IN JAW [None]
  - PNEUMONIA [None]
  - RESPIRATORY DISTRESS [None]
  - RESPIRATORY FAILURE [None]
  - STENT PLACEMENT [None]
  - STERNAL FRACTURE [None]
  - TOOTH EXTRACTION [None]
  - TOOTH INFECTION [None]
  - TOOTH LOSS [None]
  - VERTEBROPLASTY [None]
  - WALKING AID USER [None]
